FAERS Safety Report 6217040-2 (Version None)
Quarter: 2009Q2

REPORT INFORMATION
  Report Type: 
  Country: None (occurrence: None)
  Receive Date: 20090604
  Receipt Date: 20090529
  Transmission Date: 20091009
  Serious: Yes (Death, Hospitalization)
  Sender: FDA-Public Use
  Company Number: 2009SP011901

PATIENT
  Age: 39 Year
  Sex: Male

DRUGS (14)
  1. NOXAFIL [Suspect]
     Indication: FUSARIUM INFECTION
     Dates: start: 20080801
  2. VORICONAZOLE (VORICONAZOLE) [Suspect]
     Indication: FUSARIUM INFECTION
     Dates: start: 20080801
  3. AMPHOTERICIN B [Suspect]
     Indication: FUSARIUM INFECTION
     Dates: start: 20080801
  4. DACLIZUMAB [Concomitant]
  5. CYCLOSPORINE [Concomitant]
  6. CORTICOSTEROIDS [Concomitant]
  7. SULFASALAZINE [Concomitant]
  8. VANCOMYCINE [Concomitant]
  9. MEROPENEM [Concomitant]
  10. REMICADE [Concomitant]
  11. FLUCONAZOLE [Concomitant]
  12. GANCICLOVIR [Concomitant]
  13. ACYCLOVIR [Concomitant]
  14. FOSCARNET [Concomitant]

REACTIONS (8)
  - ACUTE GRAFT VERSUS HOST DISEASE IN SKIN [None]
  - DRUG INTOLERANCE [None]
  - ENTEROCOLITIS [None]
  - FUSARIUM INFECTION [None]
  - GASTROINTESTINAL HAEMORRHAGE [None]
  - PATHOGEN RESISTANCE [None]
  - PSEUDOMONAL BACTERAEMIA [None]
  - SEPSIS [None]
